FAERS Safety Report 5305996-1 (Version None)
Quarter: 2007Q2

REPORT INFORMATION
  Report Type: 
  Country: None (occurrence: None)
  Receive Date: 20070420
  Receipt Date: 20070420
  Transmission Date: 20071010
  Serious: No
  Sender: FDA-Public Use
  Company Number: None

PATIENT
  Sex: Female
  Weight: 60.1 kg

DRUGS (4)
  1. ELOXATIN [Suspect]
     Dosage: 284 MG
  2. FLUOROURACIL [Suspect]
     Dosage: 5344 MG
  3. BEVACIZUMAB (RHUMAB VEGF) [Suspect]
     Dosage: 608 MG
  4. LEUCOVORIN CALCIUM [Suspect]
     Dosage: 1340 MG

REACTIONS (1)
  - FATIGUE [None]
